FAERS Safety Report 14475808 (Version 1)
Quarter: 2018Q1

REPORT INFORMATION
  Report Type: Report from Study
  Country: KR (occurrence: KR)
  Receive Date: 20180201
  Receipt Date: 20180201
  Transmission Date: 20180509
  Serious: Yes (Hospitalization)
  Sender: FDA-Public Use
  Company Number: PHHO2014KR012542

PATIENT
  Age: 7 Year
  Sex: Female
  Weight: 19 kg

DRUGS (9)
  1. PHENOBARBITAL. [Interacting]
     Active Substance: PHENOBARBITAL
     Indication: EPILEPSY
     Dosage: 90 MG, (30 MG IN MORNING AND 60 MG EVENING)
     Route: 048
     Dates: start: 20140702, end: 20140913
  2. CLOBAZAM [Concomitant]
     Active Substance: CLOBAZAM
     Indication: EPILEPSY
     Dosage: 8.75 MG, (3.75 MG IN MORNING AND 5 MG IN EVENING)
     Route: 048
     Dates: start: 20131010
  3. VALPROIC ACID. [Concomitant]
     Active Substance: VALPROIC ACID
     Indication: EPILEPSY
     Dosage: 125 MG, BID
     Route: 048
     Dates: start: 20130828
  4. VITAMIN B6 [Concomitant]
     Active Substance: PYRIDOXINE HYDROCHLORIDE
     Indication: EPILEPSY
     Dosage: 50 MG, BID
     Route: 048
     Dates: start: 20121221
  5. BENZETHONIUM [Concomitant]
     Indication: MOUTH ULCERATION
     Dosage: 10 ML, TID
     Route: 049
     Dates: start: 20140826, end: 20141020
  6. FERRUMMATE [Concomitant]
     Indication: IRON DEFICIENCY ANAEMIA
     Dosage: 2.5 ML, BID
     Route: 048
     Dates: start: 20130603
  7. EVEROLIMUS. [Suspect]
     Active Substance: EVEROLIMUS
     Indication: TUBEROUS SCLEROSIS COMPLEX
     Dosage: (9-15 NG/ML)
     Route: 048
     Dates: start: 20140826, end: 20140910
  8. EVEROLIMUS. [Interacting]
     Active Substance: EVEROLIMUS
     Dosage: (9-15 NG/ML)
     Route: 048
     Dates: start: 20140911
  9. AUGMEX DUO                         /00756801/ [Concomitant]
     Indication: STOMATITIS
     Dosage: 7.5 ML, BID
     Route: 048
     Dates: start: 20140902, end: 20141020

REACTIONS (1)
  - Seizure [Recovered/Resolved]

NARRATIVE: CASE EVENT DATE: 20140914
